FAERS Safety Report 17858243 (Version 2)
Quarter: 2020Q2

REPORT INFORMATION
  Report Type: Report from Study
  Country: None (occurrence: US)
  Receive Date: 20200604
  Receipt Date: 20200605
  Transmission Date: 20200714
  Serious: No
  Sender: FDA-Public Use
  Company Number: US-US WORLDMEDS, LLC-USW201905-000893

PATIENT
  Age: 77 Year
  Sex: Female
  Weight: 88.9 kg

DRUGS (14)
  1. VITAMIN B-6 [Concomitant]
     Active Substance: PYRIDOXINE
  2. SERTRALINE [Concomitant]
     Active Substance: SERTRALINE HYDROCHLORIDE
  3. LUTEIN [Concomitant]
     Active Substance: LUTEIN
  4. PRAMIPEXOLE. [Concomitant]
     Active Substance: PRAMIPEXOLE
  5. RASAGILINE. [Concomitant]
     Active Substance: RASAGILINE
  6. ROSUVASTATIN. [Concomitant]
     Active Substance: ROSUVASTATIN
  7. ZEAXANTHIN [Concomitant]
     Active Substance: ZEAXANTHIN
  8. KCL [Concomitant]
     Active Substance: POTASSIUM CHLORIDE
  9. AZILECT [Concomitant]
     Active Substance: RASAGILINE MESYLATE
  10. ASA-DIPYRIDAMOLE [Concomitant]
  11. MULTIVITAMIN [Concomitant]
     Active Substance: VITAMINS
  12. SINEMET [Concomitant]
     Active Substance: CARBIDOPA\LEVODOPA
  13. CARBIDOPA-LEVODOPA [Concomitant]
     Active Substance: CARBIDOPA\LEVODOPA
  14. APOKYN [Suspect]
     Active Substance: APOMORPHINE HYDROCHLORIDE
     Indication: PARKINSON^S DISEASE
     Route: 058
     Dates: start: 20190103, end: 20190402

REACTIONS (5)
  - Injection site pruritus [Recovered/Resolved]
  - Drug ineffective [Unknown]
  - Injection site erythema [Recovered/Resolved]
  - Nausea [Recovered/Resolved]
  - Injection site nodule [Recovered/Resolved]

NARRATIVE: CASE EVENT DATE: 20190402
